FAERS Safety Report 10592371 (Version 1)
Quarter: 2014Q4

REPORT INFORMATION
  Report Type: Spontaneous
  Country: ES (occurrence: None)
  Receive Date: 20141117
  Receipt Date: 20141117
  Transmission Date: 20150529
  Serious: Yes (Life-Threatening, Hospitalization, Other)
  Sender: FDA-Public Use
  Company Number: ADR-2014-02109

PATIENT
  Age: 19 Year
  Sex: Male

DRUGS (2)
  1. BACLOFEN INTRATHECAL [Suspect]
     Active Substance: BACLOFEN
     Indication: DYSTONIA
  2. BACLOFEN (ORAL) [Suspect]
     Active Substance: BACLOFEN
     Indication: DYSTONIA

REACTIONS (10)
  - Hyperthermia [None]
  - Respiratory failure [None]
  - Sepsis [None]
  - Haemodynamic instability [None]
  - Septic shock [None]
  - Meningococcal bacteraemia [None]
  - Mental status changes [None]
  - Multi-organ failure [None]
  - Tachycardia [None]
  - Drug withdrawal syndrome [None]

NARRATIVE: CASE EVENT DATE: 20141030
